FAERS Safety Report 9868148 (Version 5)
Quarter: 2015Q1

REPORT INFORMATION
  Report Type: Report from Study
  Country: IL (occurrence: IL)
  Receive Date: 20140204
  Receipt Date: 20150105
  Transmission Date: 20150721
  Serious: Yes (Death, Hospitalization)
  Sender: FDA-Public Use
  Company Number: PHHY2014IL010437

PATIENT
  Age: 38 Year
  Sex: Female

DRUGS (1)
  1. SANDOSTATIN LAR DEPOT [Suspect]
     Active Substance: OCTREOTIDE ACETATE
     Indication: CARCINOID TUMOUR
     Dosage: 60 MG, ONCE EVERY 4 WEEKS
     Route: 030
     Dates: start: 20100701

REACTIONS (9)
  - Cough [Not Recovered/Not Resolved]
  - Lung infection [Unknown]
  - General physical health deterioration [Fatal]
  - Decreased appetite [Recovering/Resolving]
  - Chest pain [Not Recovered/Not Resolved]
  - Asthenia [Recovering/Resolving]
  - Dyspnoea [Recovering/Resolving]
  - Nausea [Recovering/Resolving]
  - Vomiting [Recovering/Resolving]

NARRATIVE: CASE EVENT DATE: 20140113
